FAERS Safety Report 15644775 (Version 1)
Quarter: 2018Q4

REPORT INFORMATION
  Report Type: Report from Study
  Country: US (occurrence: US)
  Receive Date: 20181121
  Receipt Date: 20181121
  Transmission Date: 20190205
  Serious: Yes (Other)
  Sender: FDA-Public Use
  Company Number: US-GLAXOSMITHKLINE-US2018GSK209905

PATIENT
  Sex: Female

DRUGS (1)
  1. BELIMUMAB [Suspect]
     Active Substance: BELIMUMAB
     Indication: SYSTEMIC LUPUS ERYTHEMATOSUS
     Dosage: UNK
     Dates: start: 20181110

REACTIONS (7)
  - Systemic lupus erythematosus [Unknown]
  - Burning sensation [Unknown]
  - Myalgia [Unknown]
  - Malaise [Unknown]
  - Anxiety [Unknown]
  - Arthralgia [Unknown]
  - Skin burning sensation [Unknown]
